FAERS Safety Report 6219060-0 (Version None)
Quarter: 2009Q2

REPORT INFORMATION
  Report Type: 
  Country: None (occurrence: None)
  Receive Date: 20090608
  Receipt Date: 20090604
  Transmission Date: 20091009
  Serious: Yes (Disabling, Other)
  Sender: FDA-Public Use
  Company Number: GB-ABBOTT-09P-167-0569655-00

PATIENT
  Sex: Male

DRUGS (3)
  1. HUMIRA [Suspect]
     Indication: PSORIASIS
     Route: 058
     Dates: start: 20090213, end: 20090401
  2. TIMOPTIC [Concomitant]
     Indication: GLAUCOMA
  3. OMEPRAZOLE [Concomitant]
     Indication: PEPTIC ULCER
     Route: 048

REACTIONS (8)
  - CHEST PAIN [None]
  - CHILLS [None]
  - DYSPNOEA EXERTIONAL [None]
  - FATIGUE [None]
  - HEADACHE [None]
  - MALAISE [None]
  - NAUSEA [None]
  - NIGHT SWEATS [None]
